FAERS Safety Report 4685239-2 (Version None)
Quarter: 2005Q2

REPORT INFORMATION
  Report Type: 
  Country: None (occurrence: None)
  Receive Date: 20050603
  Receipt Date: 20050523
  Transmission Date: 20051028
  Serious: Yes (Hospitalization, Other)
  Sender: FDA-Public Use
  Company Number: 214694

PATIENT
  Age: 60 Year
  Sex: Male

DRUGS (1)
  1. MABTHERA (RITUXIMAB) CONC FOR INFUSION [Suspect]
     Indication: B-CELL LYMPHOMA

REACTIONS (3)
  - FEBRILE NEUTROPENIA [None]
  - HAEMOGLOBIN DECREASED [None]
  - WHITE BLOOD CELL COUNT DECREASED [None]
